FAERS Safety Report 8485286-9 (Version None)
Quarter: 2012Q3

REPORT INFORMATION
  Report Type: 
  Country: None (occurrence: None)
  Receive Date: 20120703
  Receipt Date: 20120626
  Transmission Date: 20120928
  Serious: Yes (Hospitalization)
  Sender: FDA-Public Use
  Company Number: US-JNJFOC-20120614617

PATIENT
  Sex: Male
  Weight: 78 kg

DRUGS (4)
  1. CALCIUM [Concomitant]
  2. REMICADE [Suspect]
     Indication: INFLAMMATORY BOWEL DISEASE
     Route: 042
     Dates: start: 20101222
  3. OMEPRAZOLE [Concomitant]
  4. MESALAMINE [Concomitant]
     Route: 048

REACTIONS (1)
  - SMALL INTESTINAL OBSTRUCTION [None]
